FAERS Safety Report 9781535 (Version 1)
Quarter: 2013Q4

REPORT INFORMATION
  Report Type: Spontaneous
  Country: ES (occurrence: ES)
  Receive Date: 20131224
  Receipt Date: 20131224
  Transmission Date: 20140711
  Serious: Yes (Other)
  Sender: FDA-Public Use
  Company Number: ES-ELI_LILLY_AND_COMPANY-ES201312006897

PATIENT
  Age: 54 Year
  Sex: Female

DRUGS (4)
  1. ZYPREXA [Suspect]
     Indication: BIPOLAR DISORDER
     Dosage: 5 MG, UNKNOWN
     Route: 065
     Dates: start: 2002, end: 2008
  2. ZYPREXA [Suspect]
     Dosage: 10 MG, UNKNOWN
     Route: 065
     Dates: start: 2002, end: 2009
  3. ZYPREXA [Suspect]
     Dosage: 5 MG, UNKNOWN
     Route: 065
     Dates: start: 2009, end: 2010
  4. ZYPREXA [Suspect]
     Dosage: 2.5 MG, UNKNOWN
     Route: 065
     Dates: start: 2010

REACTIONS (5)
  - Myocardial infarction [Not Recovered/Not Resolved]
  - Arrhythmia [Not Recovered/Not Resolved]
  - Hepatitis [Not Recovered/Not Resolved]
  - Hepatotoxicity [Not Recovered/Not Resolved]
  - Cardiac disorder [Not Recovered/Not Resolved]
